FAERS Safety Report 18980335 (Version 1)
Quarter: 2021Q1

REPORT INFORMATION
  Report Type: Spontaneous
  Country: US (occurrence: US)
  Receive Date: 20210307
  Receipt Date: 20210307
  Transmission Date: 20210420
  Serious: Yes (Life-Threatening, Hospitalization)
  Sender: FDA-Public Use
  Company Number: None

PATIENT
  Age: 70 Year
  Sex: Female
  Weight: 79 kg

DRUGS (2)
  1. APIXABAN [Suspect]
     Active Substance: APIXABAN
     Indication: DEEP VEIN THROMBOSIS
     Route: 048
     Dates: start: 20201001, end: 20210306
  2. APIXABAN [Suspect]
     Active Substance: APIXABAN
     Indication: PULMONARY EMBOLISM
     Route: 048
     Dates: start: 20201001, end: 20210306

REACTIONS (6)
  - Subdural haemorrhage [None]
  - Fall [None]
  - Cerebral haemorrhage [None]
  - Chest pain [None]
  - Arthralgia [None]
  - Subdural haematoma [None]

NARRATIVE: CASE EVENT DATE: 20210306
